FAERS Safety Report 8106787-9 (Version None)
Quarter: 2011Q4

REPORT INFORMATION
  Report Type: 
  Country: None (occurrence: None)
  Receive Date: 20111222
  Receipt Date: 20111020
  Transmission Date: 20120403
  Serious: Yes (Hospitalization)
  Sender: FDA-Public Use
  Company Number: UTC-011474

PATIENT
  Age: 60 Year
  Sex: Male
  Weight: 77.73 kg

DRUGS (7)
  1. COUMADIN [Concomitant]
  2. DIURETICS (DIURETICS) [Concomitant]
  3. TYVASO [Suspect]
     Indication: PULMONARY ARTERIAL HYPERTENSION
     Dosage: 72 -90 MICROGRAMS (4 IN 1 D),INHALATION
     Route: 055
     Dates: start: 20101021
  4. DIGOXIN [Concomitant]
  5. REVATIO [Concomitant]
  6. TRACLEER [Concomitant]
  7. DILTIAZEM [Concomitant]

REACTIONS (1)
  - POST PROCEDURAL COMPLICATION [None]
